FAERS Safety Report 5987501-X (Version None)
Quarter: 2008Q4

REPORT INFORMATION
  Report Type: 
  Country: None (occurrence: None)
  Receive Date: 20081209
  Receipt Date: 20081128
  Transmission Date: 20090506
  Serious: Yes (Death)
  Sender: FDA-Public Use
  Company Number: GB-ELI_LILLY_AND_COMPANY-GB200808004125

PATIENT
  Sex: Female

DRUGS (5)
  1. PROZAC [Suspect]
     Indication: DEPRESSIVE SYMPTOM
     Dosage: 40 MG, UNK
     Route: 048
     Dates: start: 20070524
  2. AMISULPRIDE [Concomitant]
     Indication: PSYCHOTIC DISORDER
     Dosage: 400 MG, 2/D
     Route: 048
     Dates: start: 20070227
  3. PIPORTIL [Concomitant]
     Indication: PSYCHOTIC DISORDER
     Dosage: 100 MG, 2/D
     Route: 030
  4. RISPERIDONE [Concomitant]
     Indication: PSYCHOTIC DISORDER
     Dosage: 4 MG, 2/D
     Route: 048
     Dates: start: 20061031
  5. SERTRALINE [Concomitant]
     Indication: DEPRESSION
     Dosage: 150 MG, UNK
     Route: 048

REACTIONS (1)
  - DEATH [None]
